FAERS Safety Report 24544194 (Version 1)
Quarter: 2024Q4

REPORT INFORMATION
  Report Type: Spontaneous
  Country: US (occurrence: US)
  Receive Date: 20241024
  Receipt Date: 20241024
  Transmission Date: 20250114
  Serious: No
  Sender: Kenvue
  Company Number: US-KENVUE-20241000025

PATIENT
  Age: 69 Year
  Sex: Male

DRUGS (1)
  1. VISINE ALLERGY EYE RELIEF MULTI-ACTION [Suspect]
     Active Substance: NAPHAZOLINE HYDROCHLORIDE\PHENIRAMINE MALEATE
     Indication: Lacrimation increased
     Dosage: ONE DROP ON EACH EYE, ONCE
     Route: 047
     Dates: start: 20241008

REACTIONS (2)
  - Eye pain [Not Recovered/Not Resolved]
  - Eye irritation [Not Recovered/Not Resolved]

NARRATIVE: CASE EVENT DATE: 20241008
